FAERS Safety Report 6989665-8 (Version None)
Quarter: 2010Q3

REPORT INFORMATION
  Report Type: 
  Country: None (occurrence: None)
  Receive Date: 20100916
  Receipt Date: 20100218
  Transmission Date: 20110219
  Serious: Yes (Other)
  Sender: FDA-Public Use
  Company Number: IE-PFIZER INC-2009305558

PATIENT
  Sex: Female
  Weight: 80 kg

DRUGS (1)
  1. LYRICA [Suspect]
     Indication: VULVOVAGINAL PAIN
     Dosage: 300 MG, 2X/DAY
     Route: 048
     Dates: start: 20080902

REACTIONS (3)
  - MOUTH ULCERATION [None]
  - PAPILLOMA [None]
  - SKIN PAPILLOMA [None]
